FAERS Safety Report 7565725-8 (Version None)
Quarter: 2011Q2

REPORT INFORMATION
  Report Type: 
  Country: None (occurrence: None)
  Receive Date: 20110623
  Receipt Date: 20100921
  Transmission Date: 20111010
  Serious: No
  Sender: FDA-Public Use
  Company Number: US-MUTUAL PHARMACEUTICAL COMPANY, INC.-2010P1001573

PATIENT
  Sex: Female

DRUGS (2)
  1. METOCLOPRAMIDE [Suspect]
     Dates: start: 20010401, end: 20080101
  2. REGLAN [Suspect]
     Dates: start: 20010401, end: 20080101

REACTIONS (2)
  - INCORRECT DRUG ADMINISTRATION DURATION [None]
  - INJURY [None]
